FAERS Safety Report 21727193 (Version 1)
Quarter: 2022Q4

REPORT INFORMATION
  Report Type: Spontaneous
  Country: US (occurrence: None)
  Receive Date: 20221213
  Receipt Date: 20221213
  Transmission Date: 20230113
  Serious: Yes (Disabling)
  Sender: FDA-Public Use
  Company Number: None

PATIENT
  Age: 23 Year
  Sex: Female
  Weight: 96.75 kg

DRUGS (5)
  1. TRULICITY [Suspect]
     Active Substance: DULAGLUTIDE
     Indication: Insulin resistance
     Dates: start: 20210625, end: 20220325
  2. OZEMPIC [Suspect]
     Active Substance: SEMAGLUTIDE
     Indication: Insulin resistance
     Dates: start: 20220325, end: 20220701
  3. UNSPECIFIED INGREDIENT [Concomitant]
     Active Substance: UNSPECIFIED INGREDIENT
  4. SERTRALINE [Concomitant]
     Active Substance: SERTRALINE HYDROCHLORIDE
  5. ATENOLOL [Concomitant]
     Active Substance: ATENOLOL

REACTIONS (4)
  - Haematemesis [None]
  - Vision blurred [None]
  - Cholecystitis acute [None]
  - Infection [None]

NARRATIVE: CASE EVENT DATE: 20220405
